FAERS Safety Report 20622438 (Version 1)
Quarter: 2022Q1

REPORT INFORMATION
  Report Type: Spontaneous
  Country: US (occurrence: None)
  Receive Date: 20220322
  Receipt Date: 20220322
  Transmission Date: 20220423
  Serious: No
  Sender: FDA-Public Use
  Company Number: 2022A110746

PATIENT
  Age: 69 Year
  Sex: Female
  Weight: 123.9 kg

DRUGS (4)
  1. CRESTOR [Suspect]
     Active Substance: ROSUVASTATIN CALCIUM
     Indication: Blood cholesterol increased
     Route: 048
  2. METOPROLOL [Suspect]
     Active Substance: METOPROLOL
     Indication: Blood pressure measurement
     Dosage: 2 IN THE MORNING AND 2 AT NIGHT
     Route: 048
  3. CELEBREX [Suspect]
     Active Substance: CELECOXIB
     Route: 048
  4. TRAMADOL [Concomitant]
     Active Substance: TRAMADOL
     Indication: Pain
     Route: 065

REACTIONS (14)
  - COVID-19 [Unknown]
  - Pain [Unknown]
  - Hypertension [Unknown]
  - Abdominal discomfort [Unknown]
  - Osteoporosis [Unknown]
  - Spinal osteoarthritis [Unknown]
  - Arthritis [Unknown]
  - Hyperhidrosis [Unknown]
  - Headache [Unknown]
  - Musculoskeletal stiffness [Unknown]
  - Pain [Unknown]
  - Arthralgia [Unknown]
  - Weight decreased [Unknown]
  - Drug ineffective [Unknown]
